FAERS Safety Report 21248827 (Version 1)
Quarter: 2022Q3

REPORT INFORMATION
  Report Type: Spontaneous
  Country: IN (occurrence: IN)
  Receive Date: 20220824
  Receipt Date: 20220824
  Transmission Date: 20221027
  Serious: Yes (Death)
  Sender: FDA-Public Use
  Company Number: IN-PFIZER INC-2019375646

PATIENT
  Age: 86 Year
  Sex: Female

DRUGS (8)
  1. PALBOCICLIB [Suspect]
     Active Substance: PALBOCICLIB
     Indication: Breast cancer metastatic
     Dosage: 75 MG, CYCLIC (OD, 3 WEEK ON 1 WEEK OFF)
     Route: 048
     Dates: start: 20180914, end: 20220812
  2. PALBOCICLIB [Suspect]
     Active Substance: PALBOCICLIB
     Dosage: 75 MG, 1X/DAY
     Route: 048
     Dates: end: 202201
  3. PALBOCICLIB [Suspect]
     Active Substance: PALBOCICLIB
     Dosage: 75 MG, 1X/DAY
     Route: 048
  4. PALBOCICLIB [Suspect]
     Active Substance: PALBOCICLIB
     Dosage: UNK
     Route: 048
     Dates: end: 20220812
  5. FULVESTRANT [Concomitant]
     Active Substance: FULVESTRANT
     Indication: Breast cancer female
     Dosage: 250 MG, (500MG TOTAL)
     Route: 030
  6. XGEVA [Concomitant]
     Active Substance: DENOSUMAB
     Dosage: 120 MG, UNK
     Route: 058
  7. CALCIUM CARBONATE\CHOLECALCIFEROL [Concomitant]
     Active Substance: CALCIUM CARBONATE\CHOLECALCIFEROL
     Dosage: 500 MG, UNK
  8. COVID-19 VACCINE NOS [Concomitant]
     Active Substance: COVID-19 VACCINE NOS
     Indication: COVID-19 immunisation
     Dosage: DOSE NUMBER UNKNOWN, SINGLE
     Dates: start: 20210330, end: 20210330

REACTIONS (19)
  - Death [Fatal]
  - Musculoskeletal chest pain [Unknown]
  - Abdominal pain [Unknown]
  - Bone pain [Unknown]
  - Arthralgia [Unknown]
  - Dry skin [Unknown]
  - Back pain [Unknown]
  - Blood pressure systolic increased [Unknown]
  - Dizziness [Unknown]
  - Vertigo [Unknown]
  - Chest pain [Unknown]
  - Insomnia [Unknown]
  - Abdominal distension [Unknown]
  - Hyperchlorhydria [Unknown]
  - Constipation [Unknown]
  - COVID-19 [Unknown]
  - Pallor [Unknown]
  - Pleural effusion [Unknown]
  - Condition aggravated [Unknown]

NARRATIVE: CASE EVENT DATE: 20220101
